FAERS Safety Report 8036214-1 (Version None)
Quarter: 2012Q1

REPORT INFORMATION
  Report Type: 
  Country: None (occurrence: None)
  Receive Date: 20120111
  Receipt Date: 20120104
  Transmission Date: 20120608
  Serious: Yes (Hospitalization)
  Sender: FDA-Public Use
  Company Number: PHHY2011US52975

PATIENT
  Sex: Female

DRUGS (10)
  1. FOLATE SODIUM [Concomitant]
     Route: 048
  2. EXJADE [Suspect]
     Dosage: 1000 MG, QD
     Route: 048
  3. COLACE [Concomitant]
     Route: 048
  4. CALCIUM CARBONATE [Concomitant]
     Route: 048
  5. CIPRINOL [Concomitant]
  6. LISINOPRIL [Concomitant]
     Route: 048
  7. CEFTRIAXONE [Concomitant]
     Route: 048
  8. HEPARIN [Concomitant]
     Route: 058
  9. EXJADE [Suspect]
     Indication: IRON OVERLOAD
     Dosage: 1000 MG, QD
     Route: 048
     Dates: start: 20070315
  10. CARVEDILOL [Concomitant]
     Route: 048

REACTIONS (2)
  - SICKLE CELL ANAEMIA WITH CRISIS [None]
  - LYMPHADENOPATHY [None]
